FAERS Safety Report 11932898 (Version 1)
Quarter: 2016Q1

REPORT INFORMATION
  Report Type: Spontaneous
  Country: IT (occurrence: IT)
  Receive Date: 20160120
  Receipt Date: 20160120
  Transmission Date: 20160526
  Serious: Yes (Other)
  Sender: FDA-Public Use
  Company Number: IT-AMGEN-ITASP2016005809

PATIENT
  Age: 59 Year
  Sex: Male
  Weight: 98 kg

DRUGS (3)
  1. ONDANSETRON HYDROCHLORIDE. [Concomitant]
     Active Substance: ONDANSETRON HYDROCHLORIDE
     Dosage: 8 MG, UNK
     Route: 048
  2. GRANULOKINE [Suspect]
     Active Substance: FILGRASTIM
     Indication: COLONY STIMULATING FACTOR PROPHYLAXIS
     Dosage: 30 MG, DAILY (0.3 MG/ML)
     Route: 058
     Dates: start: 20160113, end: 20160114
  3. ESOMEPRAZOLO [Concomitant]
     Dosage: 40 MG, UNK
     Route: 048

REACTIONS (3)
  - Blood pressure fluctuation [Recovered/Resolved]
  - Feeling hot [Recovered/Resolved]
  - Syncope [Recovered/Resolved]

NARRATIVE: CASE EVENT DATE: 20160113
